FAERS Safety Report 5266459-5 (Version None)
Quarter: 2007Q1

REPORT INFORMATION
  Report Type: 
  Country: None (occurrence: None)
  Receive Date: 20070315
  Receipt Date: 20070309
  Transmission Date: 20070707
  Serious: Yes (Life-Threatening, Other)
  Sender: FDA-Public Use
  Company Number: IT-BRISTOL-MYERS SQUIBB COMPANY-13713201

PATIENT
  Age: 72 Year
  Sex: Female

DRUGS (5)
  1. GLUCOPHAGE [Suspect]
     Indication: DIABETES MELLITUS
     Dates: start: 20050406, end: 20070128
  2. LUVION [Suspect]
     Indication: HYPERTENSION
     Dates: start: 20050406, end: 20070128
  3. ENAPREN [Suspect]
     Indication: HYPERTENSION
     Route: 048
     Dates: start: 20050406, end: 20070128
  4. LANOXIN [Concomitant]
     Indication: CARDIAC FAILURE
     Route: 048
     Dates: start: 20050406, end: 20070128
  5. LASIX [Concomitant]
     Indication: HYPERTENSION
     Route: 048
     Dates: start: 20050406, end: 20070128

REACTIONS (2)
  - METABOLIC ACIDOSIS [None]
  - RENAL FAILURE ACUTE [None]
